FAERS Safety Report 12845585 (Version 1)
Quarter: 2016Q4

REPORT INFORMATION
  Report Type: Spontaneous
  Country: US (occurrence: US)
  Receive Date: 20161013
  Receipt Date: 20161013
  Transmission Date: 20170207
  Serious: No
  Sender: FDA-Public Use
  Company Number: US-JAZZ-2016-US-013742

PATIENT
  Sex: Female

DRUGS (25)
  1. XYREM [Suspect]
     Active Substance: SODIUM OXYBATE
     Dosage: 2.75 G, SECOND DOSE
     Route: 048
     Dates: start: 201603, end: 2016
  2. MELATONIN [Concomitant]
     Active Substance: MELATONIN
  3. ASPIRIN. [Concomitant]
     Active Substance: ASPIRIN
  4. DEXTROAMPHETAMINE. [Concomitant]
     Active Substance: DEXTROAMPHETAMINE
  5. CLOMIPRAMINE [Concomitant]
     Active Substance: CLOMIPRAMINE
  6. GABAPENTIN. [Concomitant]
     Active Substance: GABAPENTIN
  7. SEROQUEL [Concomitant]
     Active Substance: QUETIAPINE FUMARATE
  8. XANAX [Concomitant]
     Active Substance: ALPRAZOLAM
  9. PRAMIPEXOLE. [Concomitant]
     Active Substance: PRAMIPEXOLE
  10. DOXYCYCLINE HYCLATE. [Concomitant]
     Active Substance: DOXYCYCLINE HYCLATE
  11. HYDROCODONE/ACETAMINOPHEN [Concomitant]
     Active Substance: ACETAMINOPHEN\HYDROCODONE
  12. NUVIGIL [Concomitant]
     Active Substance: ARMODAFINIL
  13. LOSARTAN POTASSIUM. [Concomitant]
     Active Substance: LOSARTAN POTASSIUM
  14. XYREM [Suspect]
     Active Substance: SODIUM OXYBATE
     Dosage: DOSE ADJUSTMENTS
     Route: 048
     Dates: start: 201602, end: 201603
  15. PRAVASTATIN SODIUM. [Concomitant]
     Active Substance: PRAVASTATIN SODIUM
  16. TRAVATAN Z [Concomitant]
     Active Substance: TRAVOPROST
  17. VITAMIN B12 [Concomitant]
     Active Substance: CYANOCOBALAMIN
  18. CLONAZEPAM. [Concomitant]
     Active Substance: CLONAZEPAM
  19. METFORMIN HCL [Concomitant]
     Active Substance: METFORMIN HYDROCHLORIDE
  20. XYREM [Suspect]
     Active Substance: SODIUM OXYBATE
     Indication: NARCOLEPSY
     Dosage: 2.25 G, BID
     Route: 048
     Dates: start: 201601, end: 201602
  21. XYREM [Suspect]
     Active Substance: SODIUM OXYBATE
     Dosage: 3 G, FIRST DOSE
     Route: 048
     Dates: start: 201603, end: 2016
  22. FLUOXETINE HCL [Concomitant]
     Active Substance: FLUOXETINE HYDROCHLORIDE
  23. MULTIGEN [Concomitant]
  24. NEXIUM [Concomitant]
     Active Substance: ESOMEPRAZOLE MAGNESIUM
  25. VALTREX [Concomitant]
     Active Substance: VALACYCLOVIR HYDROCHLORIDE

REACTIONS (2)
  - Drug ineffective [Unknown]
  - Nervous system disorder [Unknown]

NARRATIVE: CASE EVENT DATE: 2016
